FAERS Safety Report 9773140 (Version 2)
Quarter: 2014Q1

REPORT INFORMATION
  Report Type: Spontaneous
  Country: GB (occurrence: GB)
  Receive Date: 20131219
  Receipt Date: 20140317
  Transmission Date: 20141002
  Serious: Yes (Death, Other)
  Sender: FDA-Public Use
  Company Number: GB-NAPPMUNDI-GBR-2013-0016639

PATIENT
  Age: 45 Year
  Sex: Female

DRUGS (27)
  1. OXYCONTIN [Suspect]
     Indication: PRODUCT USED FOR UNKNOWN INDICATION
     Dosage: 60 MG, BID
     Route: 048
  2. OXYCONTIN [Interacting]
     Indication: PRODUCT USED FOR UNKNOWN INDICATION
     Dosage: 120 MG, BID
     Route: 048
  3. OXYNORM CONCENTRATE ORAL SOLUTION 5 MG/ 5 ML [Interacting]
     Indication: PRODUCT USED FOR UNKNOWN INDICATION
     Dosage: 20 ML/20 MG, PRN (1-2 HOURLY)
     Route: 048
  4. GABAPENTIN [Interacting]
     Indication: PRODUCT USED FOR UNKNOWN INDICATION
     Dosage: 400 MG, 3 CAPSULES TID
     Route: 065
  5. DIAZEPAM [Interacting]
     Indication: PRODUCT USED FOR UNKNOWN INDICATION
     Dosage: 10 MG, UNK
     Route: 065
  6. CITALOPRAM [Interacting]
     Indication: PRODUCT USED FOR UNKNOWN INDICATION
     Dosage: 40 MG, DAILY
     Route: 048
  7. XARELTO [Concomitant]
     Dosage: 20 MG, TID
  8. ANTIBIOTICS [Concomitant]
  9. OMEPRAZOLE [Concomitant]
     Dosage: 40 MG, DAILY
  10. ZOPICLONE [Concomitant]
     Dosage: 7.5 MG, NOCTE
  11. FORTIMEL [Concomitant]
     Dosage: 1 ML, BID
  12. CALCICHEW D3 [Concomitant]
     Dosage: 1 TABLET, BID
  13. ENSURE PLUS [Concomitant]
     Dosage: 1 ML, DAILY
  14. OPTIVE [Concomitant]
     Dosage: 0.5 %, 1 DROP DAILY
  15. CLENIL MODULITE [Concomitant]
     Dosage: 50 MCG, UNK
     Route: 055
  16. QUININE SULFATE [Concomitant]
     Dosage: 200 MG, NOCTE
  17. OXYBUTYNIN [Concomitant]
     Dosage: 5 MG, UNK
  18. LOPERAMIDE [Concomitant]
     Dosage: 2 MG, 4 CAPSULES TO BE TAKEN 4 TIMES DAILY
  19. PARACETAMOL [Concomitant]
     Dosage: 500 MG, 2 TABLETS UP TO 4 TIMES DAILY
  20. VENTOLIN                           /00139501/ [Concomitant]
     Dosage: 100 MCG, BID PRN
     Route: 055
  21. REGURIN [Concomitant]
     Dosage: 60 MG, DAILY
  22. ONDANSETRON [Concomitant]
     Dosage: 8 MG, TID
  23. AZATHIOPRINE [Concomitant]
     Dosage: 75 (50+25)MG, DAILY
  24. PREDNISONE PR TABLET 5 MG [Concomitant]
     Dosage: 5 MG, BID
  25. AMITRIPTYLINE [Concomitant]
     Dosage: 50 MG, BID
  26. CHLORPHENAMINE [Concomitant]
     Dosage: 4 MG, QID
  27. COLCHICINE [Concomitant]
     Dosage: 500 MCG, (1.5 TABLETS DAILY)

REACTIONS (2)
  - Respiratory failure [Fatal]
  - Drug interaction [Unknown]
